FAERS Safety Report 23979163 (Version 1)
Quarter: 2024Q2

REPORT INFORMATION
  Report Type: Spontaneous
  Country: US (occurrence: US)
  Receive Date: 20240615
  Receipt Date: 20240615
  Transmission Date: 20240715
  Serious: Yes (Other)
  Sender: FDA-Public Use
  Company Number: US-AMGEN-USASP2024115366

PATIENT

DRUGS (1)
  1. TEPEZZA [Suspect]
     Active Substance: TEPROTUMUMAB-TRBW
     Indication: Product used for unknown indication
     Dosage: UNK
     Route: 065

REACTIONS (6)
  - Tooth disorder [Unknown]
  - Gingival recession [Unknown]
  - Eye disorder [Unknown]
  - Gastrointestinal disorder [Unknown]
  - Tooth discolouration [Unknown]
  - Hypoacusis [Unknown]
